FAERS Safety Report 5655073-5 (Version None)
Quarter: 2008Q1

REPORT INFORMATION
  Report Type: 
  Country: None (occurrence: None)
  Receive Date: 20080307
  Receipt Date: 20080114
  Transmission Date: 20080703
  Serious: No
  Sender: FDA-Public Use
  Company Number: A0694993A

PATIENT
  Age: 65 Year
  Sex: Male

DRUGS (10)
  1. REQUIP [Suspect]
     Indication: RESTLESS LEGS SYNDROME
     Dosage: 2MG AT NIGHT
     Route: 048
  2. BEER [Concomitant]
  3. FLOMAX [Concomitant]
  4. AVODART [Concomitant]
  5. LISINOPRIL [Concomitant]
  6. CARDURA [Concomitant]
  7. FLUOXETINE [Concomitant]
  8. OMEPRAZOLE [Concomitant]
  9. LORAZEPAM [Concomitant]
  10. ASPIRIN [Concomitant]

REACTIONS (3)
  - PHARMACEUTICAL PRODUCT COMPLAINT [None]
  - RESTLESS LEGS SYNDROME [None]
  - THERAPEUTIC RESPONSE DECREASED [None]
